FAERS Safety Report 13782373 (Version 6)
Quarter: 2017Q4

REPORT INFORMATION
  Report Type: Spontaneous
  Country: US (occurrence: US)
  Receive Date: 20170724
  Receipt Date: 20171106
  Transmission Date: 20180320
  Serious: Yes (Hospitalization)
  Sender: FDA-Public Use
  Company Number: US-PFIZER INC-2017314441

PATIENT
  Age: 66 Year
  Sex: Female
  Weight: 92.1 kg

DRUGS (8)
  1. IBRANCE [Suspect]
     Active Substance: PALBOCICLIB
     Indication: BREAST CANCER METASTATIC
     Dosage: 125 MG, CYCLIC (ONCE A DAY)
     Route: 048
     Dates: start: 201602
  2. XGEVA [Suspect]
     Active Substance: DENOSUMAB
     Indication: BONE DISORDER
     Dosage: MONTHLY
     Route: 058
  3. FASLODEX [Concomitant]
     Active Substance: FULVESTRANT
     Indication: BREAST CANCER METASTATIC
     Dosage: MONTHLY (5ML INJECTION INTO EACH HIP)
     Route: 030
     Dates: start: 201512
  4. IRON FERROUS SULFATE [Concomitant]
     Indication: HAEMOGLOBIN ABNORMAL
  5. HYDROCODONE [Concomitant]
     Active Substance: HYDROCODONE
     Indication: ANALGESIC THERAPY
     Dosage: 5-325MG, (EVERY 6 HOURS, LIKE 3 TO 4 TABLETS A DAY)
     Dates: start: 20170628
  6. IBRANCE [Suspect]
     Active Substance: PALBOCICLIB
     Indication: BREAST CANCER FEMALE
     Dosage: 125 MG, CYCLIC (DAILY FOR 21 DAYS ON AND 7 DAYS OFF FOR A 28 DAY CYCLE)
     Route: 048
     Dates: start: 20171102
  7. IRON FERROUS SULFATE [Concomitant]
     Indication: ANAEMIA POSTOPERATIVE
     Dosage: 650 MG, DAILY (325MG, TWO OF THOSE A DAY 650MG A DAY)
  8. IBRANCE [Suspect]
     Active Substance: PALBOCICLIB
     Indication: OESTROGEN RECEPTOR ASSAY POSITIVE

REACTIONS (5)
  - Fall [Recovering/Resolving]
  - Full blood count decreased [Unknown]
  - Body height decreased [Unknown]
  - Femur fracture [Recovering/Resolving]
  - Anaemia [Unknown]

NARRATIVE: CASE EVENT DATE: 20170625
